FAERS Safety Report 4358975-5 (Version None)
Quarter: 2004Q2

REPORT INFORMATION
  Report Type: 
  Country: None (occurrence: None)
  Receive Date: 20040512
  Receipt Date: 20040428
  Transmission Date: 20050107
  Serious: Yes (Other)
  Sender: FDA-Public Use
  Company Number: USA040466239

PATIENT
  Age: 78 Year
  Sex: Female
  Weight: 59 kg

DRUGS (9)
  1. FORTEO [Suspect]
     Indication: OSTEOPOROSIS
     Dates: start: 20030522, end: 20030902
  2. HIGH BLOOD PRESSURE MEDICATION [Concomitant]
  3. LEVOXYL [Concomitant]
  4. CALCIUM [Concomitant]
  5. VITAMIN E [Concomitant]
  6. MULTI-VITAMIN [Concomitant]
  7. FOLIC ACID [Concomitant]
  8. VITAMIN B-12 [Concomitant]
  9. FOSAMAX [Concomitant]

REACTIONS (3)
  - BLOOD CALCIUM INCREASED [None]
  - PARATHYROID DISORDER [None]
  - PHARMACEUTICAL PRODUCT COMPLAINT [None]
